FAERS Safety Report 8694579 (Version 2)
Quarter: 2012Q4

REPORT INFORMATION
  Report Type: 
  Country: NO (occurrence: US)
  Receive Date: 20120731
  Receipt Date: 20120831
  Transmission Date: 20130627
  Serious: Yes (Hospitalization, Disabling, Other)
  Sender: FDA-Public Use
  Company Number: US-009507513-1207USA010244

PATIENT

DRUGS (12)
  1. ZOCOR [Suspect]
     Indication: PRODUCT USED FOR UNKNOWN INDICATION
     Dosage: UNK
     Route: 048
     Dates: start: 201106
  2. REMICADE [Suspect]
     Indication: ANKYLOSING SPONDYLITIS
     Dosage: UNK
     Route: 042
     Dates: start: 2008
  3. REMICADE [Suspect]
     Indication: ANKYLOSING SPONDYLITIS
  4. LOPERAMID [Concomitant]
  5. METOPROLOL [Concomitant]
  6. PARALGIN FORTE [Concomitant]
  7. PENTASA [Concomitant]
     Dosage: UNK
     Route: 065
     Dates: start: 201106
  8. ATACAND PLUS [Concomitant]
     Dosage: UNK
     Route: 065
     Dates: start: 201106
  9. PARACET [Concomitant]
  10. ALBYL-E [Concomitant]
     Dosage: UNK
     Route: 065
     Dates: start: 201106
  11. SELO-ZOK [Concomitant]
     Dosage: UNK
     Route: 065
     Dates: start: 201106
  12. FURIX [Concomitant]
     Dosage: UNK
     Route: 065
     Dates: start: 201106

REACTIONS (9)
  - Cardiac failure [Unknown]
  - Coronary artery stenosis [Unknown]
  - Coronary artery stenosis [Unknown]
  - Atrial fibrillation [Unknown]
  - Dilatation ventricular [Unknown]
  - Intestinal stenosis [Unknown]
  - Aortic valve incompetence [Unknown]
  - Aortic valve incompetence [Unknown]
  - Subileus [Unknown]
